FAERS Safety Report 15196367 (Version 2)
Quarter: 2019Q2

REPORT INFORMATION
  Report Type: Report from Study
  Country: RU (occurrence: RU)
  Receive Date: 20180725
  Receipt Date: 20190408
  Transmission Date: 20190711
  Serious: Yes (Other)
  Sender: FDA-Public Use
  Company Number: RU-BAUSCH-BL-2018-020197

PATIENT
  Age: 38 Year
  Sex: Female
  Weight: 90 kg

DRUGS (1)
  1. ALFA NORMIX [Suspect]
     Active Substance: RIFAXIMIN
     Indication: DIVERTICULUM
     Route: 048
     Dates: start: 20171222, end: 20180610

REACTIONS (1)
  - Maternal exposure during pregnancy [Unknown]
